FAERS Safety Report 7359638-4 (Version None)
Quarter: 2011Q1

REPORT INFORMATION
  Report Type: 
  Country: None (occurrence: None)
  Receive Date: 20110317
  Receipt Date: 20100804
  Transmission Date: 20110831
  Serious: Yes (Hospitalization, Other)
  Sender: FDA-Public Use
  Company Number: US-PFIZER INC-2010092631

PATIENT
  Sex: Female
  Weight: 79 kg

DRUGS (6)
  1. XANAX [Concomitant]
     Indication: INSOMNIA
  2. ATACAND [Concomitant]
  3. LEVOTHYROXINE SODIUM [Concomitant]
  4. FUROSEMIDE [Concomitant]
  5. NORVASC [Suspect]
     Indication: HYPERTENSION
     Dates: start: 19940101
  6. LIDOCAINE HYDROCHLORIDE [Suspect]
     Indication: INGROWING NAIL
     Dates: start: 20100513, end: 20100513

REACTIONS (7)
  - BLOOD PRESSURE INCREASED [None]
  - DIZZINESS [None]
  - ARTERIOGRAM CORONARY ABNORMAL [None]
  - PALPITATIONS [None]
  - INGROWING NAIL [None]
  - HEADACHE [None]
  - WEIGHT DECREASED [None]
